FAERS Safety Report 18052113 (Version 4)
Quarter: 2021Q2

REPORT INFORMATION
  Report Type: Spontaneous
  Country: AU (occurrence: AU)
  Receive Date: 20200722
  Receipt Date: 20210628
  Transmission Date: 20210717
  Serious: Yes (Other)
  Sender: FDA-Public Use
  Company Number: AU-TEVA-2020-AU-1805101

PATIENT
  Age: 78 Year
  Sex: Female

DRUGS (3)
  1. DASATINIB. [Concomitant]
     Active Substance: DASATINIB
  2. IMATINIB MESYLATE. [Suspect]
     Active Substance: IMATINIB MESYLATE
     Indication: ACUTE LYMPHOCYTIC LEUKAEMIA
     Route: 065
  3. PONATINIB [Concomitant]
     Active Substance: PONATINIB

REACTIONS (2)
  - Philadelphia positive acute lymphocytic leukaemia [Unknown]
  - Condition aggravated [Unknown]
